FAERS Safety Report 15312003 (Version 1)
Quarter: 2018Q3

REPORT INFORMATION
  Report Type: Spontaneous
  Country: BE (occurrence: BE)
  Receive Date: 20180823
  Receipt Date: 20180823
  Transmission Date: 20181010
  Serious: Yes (Other)
  Sender: FDA-Public Use
  Company Number: BE-TEVA-2018-BE-946946

PATIENT
  Sex: Female

DRUGS (4)
  1. ALPRAZOLAM 1 MG [Concomitant]
     Active Substance: ALPRAZOLAM
     Route: 048
  2. NUROFEN 400 MG [Concomitant]
     Route: 048
  3. ZYRTEC [Concomitant]
     Active Substance: CETIRIZINE HYDROCHLORIDE
     Route: 048
  4. IBUPROFEN 600 MG [Suspect]
     Active Substance: IBUPROFEN
     Route: 048

REACTIONS (3)
  - Tongue disorder [Unknown]
  - Palpitations [Unknown]
  - Pallor [Unknown]
